FAERS Safety Report 25351723 (Version 1)
Quarter: 2025Q2

REPORT INFORMATION
  Report Type: Spontaneous
  Country: GB (occurrence: GB)
  Receive Date: 20250523
  Receipt Date: 20250523
  Transmission Date: 20250717
  Serious: Yes (Other)
  Sender: NOVO NORDISK
  Company Number: None

PATIENT
  Age: 54 Year
  Sex: Female
  Weight: 126 kg

DRUGS (7)
  1. WEGOVY [Suspect]
     Active Substance: SEMAGLUTIDE
     Indication: Weight decreased
  2. WEGOVY [Suspect]
     Active Substance: SEMAGLUTIDE
     Dates: start: 202501
  3. ESTRADIOL [Concomitant]
     Active Substance: ESTRADIOL
  4. FLUOXETINE [Concomitant]
     Active Substance: FLUOXETINE HYDROCHLORIDE
  5. LANSOPRAZOLE [Concomitant]
     Active Substance: LANSOPRAZOLE
  6. LOSARTAN [Concomitant]
     Active Substance: LOSARTAN
  7. UTROGESTAN [Concomitant]
     Active Substance: PROGESTERONE

REACTIONS (1)
  - Vaginal haemorrhage [Not Recovered/Not Resolved]

NARRATIVE: CASE EVENT DATE: 20250401
